FAERS Safety Report 25445527 (Version 1)
Quarter: 2025Q2

REPORT INFORMATION
  Report Type: Report from Study
  Country: US (occurrence: US)
  Receive Date: 20250617
  Receipt Date: 20250617
  Transmission Date: 20250716
  Serious: Yes (Other)
  Sender: ALEXION PHARMACEUTICALS
  Company Number: US-ASTRAZENECA-202506USA012322US

PATIENT
  Age: 1 Year

DRUGS (1)
  1. STRENSIQ [Suspect]
     Active Substance: ASFOTASE ALFA
     Indication: Phosphorus metabolism disorder
     Dosage: 20 MILLIGRAM, TIW
     Route: 065

REACTIONS (3)
  - Craniosynostosis [Unknown]
  - Vitamin B6 increased [Unknown]
  - Blood calcium increased [Unknown]
